FAERS Safety Report 13780240 (Version 1)
Quarter: 2017Q3

REPORT INFORMATION
  Report Type: Other
  Country: US (occurrence: US)
  Receive Date: 20170724
  Receipt Date: 20170724
  Transmission Date: 20171127
  Serious: Yes (Hospitalization)
  Sender: FDA-Public Use
  Company Number: US-ORCHID HEALTHCARE-2023656

PATIENT
  Age: 32 Year
  Sex: Male

DRUGS (1)
  1. PANTOPRAZOLE SODIUM. [Suspect]
     Active Substance: PANTOPRAZOLE SODIUM
     Indication: GASTROOESOPHAGEAL REFLUX DISEASE
     Route: 065

REACTIONS (5)
  - Hypocalcaemia [Recovered/Resolved]
  - Drug interaction [Recovered/Resolved]
  - Asthenia [Unknown]
  - Hypoaesthesia oral [Unknown]
  - Paraesthesia [Unknown]
